FAERS Safety Report 22263506 (Version 1)
Quarter: 2023Q2

REPORT INFORMATION
  Report Type: Spontaneous
  Country: US (occurrence: US)
  Receive Date: 20230428
  Receipt Date: 20230428
  Transmission Date: 20230722
  Serious: No
  Sender: FDA-Public Use
  Company Number: US-LEO Pharma-351608

PATIENT
  Age: 44 Year
  Sex: Female

DRUGS (1)
  1. ADBRY [Suspect]
     Active Substance: TRALOKINUMAB-LDRM
     Indication: Product used for unknown indication
     Dosage: DOSAGE : 2 150 MG SYR EVERY OTHER WEEK?STOPPED - PARTIAL : MARCH-2023
     Dates: start: 20221226

REACTIONS (1)
  - Alopecia [Unknown]
